FAERS Safety Report 8764627 (Version 1)
Quarter: 2012Q4

REPORT INFORMATION
  Report Type: 
  Country: US (occurrence: US)
  Receive Date: 20120831
  Receipt Date: 20120831
  Transmission Date: 20130627
  Serious: Yes (Other)
  Sender: FDA-Public Use
  Company Number: US-ASTRAZENECA-2012SE64668

PATIENT
  Age: 51 Year
  Sex: Female

DRUGS (2)
  1. SYMBICORT PMDI [Suspect]
     Dosage: FREQUENCY UNKNOWN
     Route: 055
  2. EYE DROPS [Interacting]
     Route: 047

REACTIONS (3)
  - Drug interaction [Unknown]
  - Cataract [Unknown]
  - Blindness [Unknown]
